FAERS Safety Report 8243105-X (Version None)
Quarter: 2012Q1

REPORT INFORMATION
  Report Type: 
  Country: None (occurrence: None)
  Receive Date: 20120329
  Receipt Date: 20110927
  Transmission Date: 20120608
  Serious: No
  Sender: FDA-Public Use
  Company Number: US-MYLANLABS-2011S1020367

PATIENT

DRUGS (1)
  1. ALBUTEROL SULFATE [Suspect]

REACTIONS (5)
  - FATIGUE [None]
  - ABNORMAL SENSATION IN EYE [None]
  - DYSGEUSIA [None]
  - OEDEMA PERIPHERAL [None]
  - PERIORBITAL OEDEMA [None]
